FAERS Safety Report 4434201-3 (Version None)
Quarter: 2004Q3

REPORT INFORMATION
  Report Type: 
  Country: None (occurrence: None)
  Receive Date: 20040825
  Receipt Date: 20040811
  Transmission Date: 20050211
  Serious: Yes (Other)
  Sender: FDA-Public Use
  Company Number: 8006405

PATIENT
  Sex: Female
  Weight: 1.69 kg

DRUGS (6)
  1. KEPPRA [Suspect]
     Dosage: TRP
     Route: 064
     Dates: end: 20040601
  2. CLOBAZAM [Concomitant]
  3. LAMOTRIGINE [Concomitant]
  4. LORAZEPAM [Concomitant]
  5. HYDROCORTISONE [Concomitant]
  6. THYROXIN [Concomitant]

REACTIONS (7)
  - DEPRESSED LEVEL OF CONSCIOUSNESS [None]
  - HYPOTONIA [None]
  - MATERNAL DRUGS AFFECTING FOETUS [None]
  - NEONATAL DISORDER [None]
  - PREMATURE BABY [None]
  - RESPIRATORY DISORDER [None]
  - SOMNOLENCE [None]
